FAERS Safety Report 11125578 (Version 2)
Quarter: 2015Q3

REPORT INFORMATION
  Report Type: Spontaneous
  Country: US (occurrence: US)
  Receive Date: 20150520
  Receipt Date: 20150730
  Transmission Date: 20151125
  Serious: No
  Sender: FDA-Public Use
  Company Number: US-PFIZER INC-2015170332

PATIENT
  Age: 33 Year
  Sex: Male

DRUGS (2)
  1. SOMATULINE AUTOGEL [Concomitant]
     Active Substance: LANREOTIDE ACETATE
     Dosage: UNK (EVERY 6 WEEKS)
  2. SOMAVERT [Suspect]
     Active Substance: PEGVISOMANT
     Indication: ACROMEGALY
     Dosage: UNK UNK, 1X/DAY
     Route: 058
     Dates: start: 20030101, end: 20080101

REACTIONS (1)
  - Hormone level abnormal [Unknown]
